FAERS Safety Report 6078524-3 (Version None)
Quarter: 2009Q1

REPORT INFORMATION
  Report Type: 
  Country: None (occurrence: None)
  Receive Date: 20090211
  Receipt Date: 20090211
  Transmission Date: 20090719
  Serious: Yes (Life-Threatening, Other)
  Sender: FDA-Public Use
  Company Number: None

PATIENT
  Age: 36 Year
  Sex: Female
  Weight: 52.1637 kg

DRUGS (1)
  1. LYRICA [Suspect]
     Indication: FIBROMYALGIA
     Dosage: 1 CAPSULE 3X DAILY PO
     Route: 048
     Dates: start: 20071105, end: 20080205

REACTIONS (92)
  - ABASIA [None]
  - ABDOMINAL DISTENSION [None]
  - ABDOMINAL PAIN [None]
  - ABDOMINAL PAIN UPPER [None]
  - ACTIVITIES OF DAILY LIVING IMPAIRED [None]
  - AGGRESSION [None]
  - AGITATION [None]
  - ALOPECIA [None]
  - AMNESIA [None]
  - ANAEMIA [None]
  - APATHY [None]
  - APHASIA [None]
  - AUTONOMIC NERVOUS SYSTEM IMBALANCE [None]
  - BLOOD PRESSURE DECREASED [None]
  - CARDIAC DISORDER [None]
  - CHILLS [None]
  - COGNITIVE DISORDER [None]
  - COLD SWEAT [None]
  - CONFUSIONAL STATE [None]
  - CONJUNCTIVITIS INFECTIVE [None]
  - CONTUSION [None]
  - DEPRESSION [None]
  - DIARRHOEA [None]
  - DISORIENTATION [None]
  - DISTURBANCE IN ATTENTION [None]
  - DIZZINESS [None]
  - DRUG INEFFECTIVE [None]
  - DRY EYE [None]
  - DRY SKIN [None]
  - DYSKINESIA [None]
  - DYSPNOEA [None]
  - DYSSTASIA [None]
  - EMOTIONAL DISORDER [None]
  - EYE SWELLING [None]
  - FALL [None]
  - FATIGUE [None]
  - FEELING ABNORMAL [None]
  - FEELINGS OF WORTHLESSNESS [None]
  - FINGER DEFORMITY [None]
  - GAIT DISTURBANCE [None]
  - GENERALISED OEDEMA [None]
  - GRIP STRENGTH DECREASED [None]
  - HAIR TEXTURE ABNORMAL [None]
  - HEARING IMPAIRED [None]
  - HOSTILITY [None]
  - HYPERAESTHESIA [None]
  - HYPERHIDROSIS [None]
  - HYPOTHYROIDISM [None]
  - IMPAIRED WORK ABILITY [None]
  - INSOMNIA [None]
  - LETHARGY [None]
  - LOSS OF CONSCIOUSNESS [None]
  - LOSS OF EMPLOYMENT [None]
  - MALAISE [None]
  - MEMORY IMPAIRMENT [None]
  - MICTURITION DISORDER [None]
  - MOTOR DYSFUNCTION [None]
  - MUSCLE DISORDER [None]
  - MUSCLE SPASMS [None]
  - MUSCLE TWITCHING [None]
  - MUSCULAR WEAKNESS [None]
  - MYALGIA [None]
  - NAUSEA [None]
  - NIGHT BLINDNESS [None]
  - NIGHTMARE [None]
  - OEDEMA [None]
  - OEDEMA MOUTH [None]
  - OEDEMA PERIPHERAL [None]
  - ORAL DISORDER [None]
  - ORTHOSTATIC HYPOTENSION [None]
  - PAIN [None]
  - PAIN IN EXTREMITY [None]
  - PARAESTHESIA [None]
  - PERSONALITY CHANGE [None]
  - RESTLESS LEGS SYNDROME [None]
  - SENSATION OF HEAVINESS [None]
  - SLEEP APNOEA SYNDROME [None]
  - SLEEP DISORDER [None]
  - SOCIAL AVOIDANT BEHAVIOUR [None]
  - SOMNOLENCE [None]
  - SPEECH DISORDER [None]
  - STUPOR [None]
  - SUICIDAL IDEATION [None]
  - SWELLING FACE [None]
  - SWOLLEN TONGUE [None]
  - TENDERNESS [None]
  - THINKING ABNORMAL [None]
  - TRICHORRHEXIS [None]
  - VISION BLURRED [None]
  - VISUAL IMPAIRMENT [None]
  - VOMITING [None]
  - WEIGHT INCREASED [None]
